FAERS Safety Report 8016467-6 (Version None)
Quarter: 2011Q4

REPORT INFORMATION
  Report Type: 
  Country: None (occurrence: None)
  Receive Date: 20111230
  Receipt Date: 20111226
  Transmission Date: 20120403
  Serious: Yes (Hospitalization, Other)
  Sender: FDA-Public Use
  Company Number: BR-ABBOTT-11P-020-0874985-00

PATIENT
  Sex: Female
  Weight: 50 kg

DRUGS (4)
  1. PREDNISONE TAB [Concomitant]
     Indication: CROHN'S DISEASE
  2. HUMIRA [Suspect]
     Route: 058
  3. HUMIRA [Suspect]
     Route: 058
  4. HUMIRA [Suspect]
     Indication: CROHN'S DISEASE
     Route: 058
     Dates: start: 20100101

REACTIONS (16)
  - PYREXIA [None]
  - CROHN'S DISEASE [None]
  - DECREASED APPETITE [None]
  - DRUG HYPERSENSITIVITY [None]
  - PAIN IN EXTREMITY [None]
  - ABDOMINAL PAIN [None]
  - ABDOMINAL ABSCESS [None]
  - GINGIVAL INFECTION [None]
  - OEDEMA PERIPHERAL [None]
  - RASH [None]
  - TOOTH DISORDER [None]
  - GAIT DISTURBANCE [None]
  - GENERALISED OEDEMA [None]
  - ANAEMIA [None]
  - WOUND SECRETION [None]
  - TOOTHACHE [None]
